FAERS Safety Report 24203392 (Version 1)
Quarter: 2024Q3

REPORT INFORMATION
  Report Type: Report from Study
  Country: US (occurrence: US)
  Receive Date: 20240813
  Receipt Date: 20240813
  Transmission Date: 20241017
  Serious: Yes (Hospitalization, Other)
  Sender: SANOFI AVENTIS
  Company Number: US-SA-SAC20240807001335

PATIENT
  Age: 59 Year
  Sex: Male

DRUGS (2)
  1. ISATUXIMAB-IRFC [Suspect]
     Active Substance: ISATUXIMAB-IRFC
     Indication: Plasma cell myeloma
     Dosage: UNK
     Route: 042
     Dates: start: 20240228
  2. KYPROLIS [Concomitant]
     Active Substance: CARFILZOMIB
     Dosage: UNK

REACTIONS (5)
  - Chest pain [Recovered/Resolved]
  - Dizziness [Recovering/Resolving]
  - Neuropathy peripheral [Recovering/Resolving]
  - Dyspnoea [Recovered/Resolved]
  - Inappropriate schedule of product administration [Unknown]

NARRATIVE: CASE EVENT DATE: 20240101
